FAERS Safety Report 7042692-7 (Version None)
Quarter: 2010Q4

REPORT INFORMATION
  Report Type: 
  Country: None (occurrence: None)
  Receive Date: 20101013
  Receipt Date: 20090921
  Transmission Date: 20110411
  Serious: No
  Sender: FDA-Public Use
  Company Number: US-ASTRAZENECA-2009SE14337

PATIENT
  Age: 85 Year
  Sex: Female
  Weight: 59 kg

DRUGS (3)
  1. SYMBICORT [Suspect]
     Indication: CHRONIC OBSTRUCTIVE PULMONARY DISEASE
     Dosage: 640 MCG, TWICE DAILY
     Route: 055
     Dates: start: 20090801
  2. NEXIUM [Suspect]
     Indication: GASTROOESOPHAGEAL REFLUX DISEASE
     Route: 048
     Dates: start: 20090801
  3. SPIRIVA [Concomitant]

REACTIONS (1)
  - INCREASED UPPER AIRWAY SECRETION [None]
